FAERS Safety Report 6272595-7 (Version None)
Quarter: 2009Q3

REPORT INFORMATION
  Report Type: 
  Country: None (occurrence: None)
  Receive Date: 20090716
  Receipt Date: 20090716
  Transmission Date: 20100115
  Serious: Yes (Death, Life-Threatening, Hospitalization, Disabling)
  Sender: FDA-Public Use
  Company Number: None

PATIENT
  Age: 63 Year
  Sex: Male
  Weight: 91.173 kg

DRUGS (15)
  1. ISENTRESS [Suspect]
     Indication: ACQUIRED IMMUNODEFICIENCY SYNDROME
     Dosage: 400MG BID ORALLY
     Route: 048
     Dates: start: 20080805
  2. ISENTRESS [Suspect]
     Indication: HIV INFECTION
     Dosage: 400MG BID ORALLY
     Route: 048
     Dates: start: 20080805
  3. REYATAZ [Suspect]
     Indication: ACQUIRED IMMUNODEFICIENCY SYNDROME
     Dosage: 2 CAPSULES QD ORALLY
     Route: 048
     Dates: start: 20080805
  4. REYATAZ [Suspect]
     Indication: HIV INFECTION
     Dosage: 2 CAPSULES QD ORALLY
     Route: 048
     Dates: start: 20080805
  5. WARFARIN SODIUM [Concomitant]
  6. GLYBURIDE [Concomitant]
  7. LIPITOR [Concomitant]
  8. LANOXIN [Concomitant]
  9. ASPIRIN [Concomitant]
  10. MAGNESIUM OXIDE [Concomitant]
  11. METOPROLOL TARTRATE [Concomitant]
  12. GEMFIBROZIL [Concomitant]
  13. LANTUS [Concomitant]
  14. NOVOLOG [Concomitant]
  15. TYLENOL #3 (WITH CODEINE) [Concomitant]

REACTIONS (13)
  - ANAEMIA [None]
  - DEEP VEIN THROMBOSIS [None]
  - DIVERTICULUM INTESTINAL [None]
  - FEBRILE NEUTROPENIA [None]
  - GASTROINTESTINAL HAEMORRHAGE [None]
  - LUNG CANCER METASTATIC [None]
  - METABOLIC ACIDOSIS [None]
  - MUSCLE ATROPHY [None]
  - PULMONARY EMBOLISM [None]
  - SEPTIC SHOCK [None]
  - THYMIC CANCER METASTATIC [None]
  - WAIST CIRCUMFERENCE INCREASED [None]
  - WEIGHT DECREASED [None]
